FAERS Safety Report 9667659 (Version 1)
Quarter: 2013Q4

REPORT INFORMATION
  Report Type: Spontaneous
  Country: US (occurrence: US)
  Receive Date: 20131101
  Receipt Date: 20131101
  Transmission Date: 20140711
  Serious: No
  Sender: FDA-Public Use
  Company Number: US-SAVIENT-2012S1000092

PATIENT
  Age: 42 Year
  Sex: Male

DRUGS (12)
  1. KRYSTEXXA INJECTION [Suspect]
     Indication: GOUT
     Route: 042
     Dates: start: 20120823, end: 20120823
  2. KRYSTEXXA INJECTION [Suspect]
     Indication: GOUT
     Route: 042
     Dates: start: 20120906, end: 20120906
  3. SOLU-MEDROL [Suspect]
     Indication: PREMEDICATION
     Dates: start: 20120823, end: 20120823
  4. SOLU-MEDROL [Suspect]
     Indication: PREMEDICATION
     Dates: start: 20120906, end: 20120906
  5. BENADRYL /01563701/ [Concomitant]
     Indication: PREMEDICATION
     Dates: start: 20120822, end: 20120822
  6. BENADRYL /01563701/ [Concomitant]
     Indication: PREMEDICATION
     Dates: start: 20120905, end: 20120905
  7. TYLENOL /00020001/ [Concomitant]
     Indication: PREMEDICATION
     Dates: start: 20120823, end: 20120823
  8. TYLENOL /00020001/ [Concomitant]
     Indication: PREMEDICATION
     Dates: start: 20120906, end: 20120906
  9. INSULIN [Concomitant]
     Indication: DIABETES MELLITUS
     Dates: end: 201208
  10. INSULIN [Concomitant]
     Indication: DIABETES MELLITUS
     Dates: start: 201208
  11. ATENOLOL [Concomitant]
     Indication: HYPERTENSION
  12. ULORIC [Concomitant]
     Indication: PRODUCT USED FOR UNKNOWN INDICATION
     Dates: end: 2012

REACTIONS (1)
  - Blood glucose increased [Unknown]
